FAERS Safety Report 5661407-8 (Version None)
Quarter: 2008Q1

REPORT INFORMATION
  Report Type: 
  Country: None (occurrence: None)
  Receive Date: 20080311
  Receipt Date: 20080227
  Transmission Date: 20080703
  Serious: Yes (Hospitalization, Other)
  Sender: FDA-Public Use
  Company Number: US-ELI_LILLY_AND_COMPANY-US200802006605

PATIENT
  Sex: Female

DRUGS (3)
  1. CYMBALTA [Suspect]
     Indication: DEPRESSION
     Dosage: 1 D/F, UNK
  2. VALIUM [Concomitant]
  3. ALCOHOL [Concomitant]
     Dosage: 1 D/F, UNK

REACTIONS (1)
  - HEPATIC ENZYME INCREASED [None]
